FAERS Safety Report 5214741-X (Version None)
Quarter: 2007Q1

REPORT INFORMATION
  Report Type: 
  Country: None (occurrence: None)
  Receive Date: 20070117
  Receipt Date: 20070103
  Transmission Date: 20070707
  Serious: Yes (Hospitalization)
  Sender: FDA-Public Use
  Company Number: 6028656

PATIENT
  Age: 70 Year
  Sex: Male

DRUGS (1)
  1. BISOPROLOL MERCK (5 MG) (BISOPROLOL FUMARATE) [Suspect]
     Indication: DRUG USE FOR UNKNOWN INDICATION

REACTIONS (10)
  - BLOOD PRESSURE SYSTOLIC INCREASED [None]
  - BRADYCARDIA [None]
  - LOSS OF CONSCIOUSNESS [None]
  - MUSCULOSKELETAL CHEST PAIN [None]
  - ROAD TRAFFIC ACCIDENT [None]
  - SUPRAVENTRICULAR EXTRASYSTOLES [None]
  - TONGUE INJURY [None]
  - TOOTH INJURY [None]
  - VENTRICULAR EXTRASYSTOLES [None]
  - WHIPLASH INJURY [None]
